FAERS Safety Report 7929673-3 (Version None)
Quarter: 2011Q4

REPORT INFORMATION
  Report Type: 
  Country: None (occurrence: None)
  Receive Date: 20111121
  Receipt Date: 20111115
  Transmission Date: 20120403
  Serious: Yes (Hospitalization, Other)
  Sender: FDA-Public Use
  Company Number: US-PFIZER INC-2011156405

PATIENT
  Sex: Female

DRUGS (2)
  1. ZOLOFT [Suspect]
     Dosage: ONE AND HALF PILLS
  2. ZOLOFT [Suspect]
     Indication: DEPRESSION
     Dosage: 50 MG, 1X/DAY
     Route: 048

REACTIONS (4)
  - SUICIDAL IDEATION [None]
  - ALCOHOLIC [None]
  - ALCOHOLISM [None]
  - HEAD INJURY [None]
